FAERS Safety Report 5614964-1 (Version None)
Quarter: 2008Q1

REPORT INFORMATION
  Report Type: 
  Country: None (occurrence: None)
  Receive Date: 20080206
  Receipt Date: 20080201
  Transmission Date: 20080703
  Serious: Yes (Hospitalization)
  Sender: FDA-Public Use
  Company Number: DE-BRISTOL-MYERS SQUIBB COMPANY-14062947

PATIENT
  Age: 21 Year
  Sex: Male

DRUGS (2)
  1. QUIBRON-T TABS [Suspect]
     Indication: COMPLETED SUICIDE
     Dosage: 40 TABS OF 600MG EACH;TABLET- 300MG
     Route: 048
  2. N-ACETYLCYSTEINE [Suspect]
     Indication: COMPLETED SUICIDE
     Dosage: 10 TABS OF 600MG EACH.

REACTIONS (5)
  - DRUG TOXICITY [None]
  - FRUSTRATION [None]
  - LIVER FUNCTION TEST ABNORMAL [None]
  - SUICIDE ATTEMPT [None]
  - TACHYCARDIA [None]
